FAERS Safety Report 7959323-1 (Version None)
Quarter: 2011Q4

REPORT INFORMATION
  Report Type: 
  Country: None (occurrence: None)
  Receive Date: 20111206
  Receipt Date: 20111129
  Transmission Date: 20120403
  Serious: Yes (Other)
  Sender: FDA-Public Use
  Company Number: US-PFIZER INC-2011292327

PATIENT

DRUGS (4)
  1. CARBOPLATIN [Suspect]
     Indication: RETINOBLASTOMA
     Dosage: 30 MG, UNK
     Route: 013
  2. ASPIRIN [Concomitant]
     Dosage: 40 MG FOR 2 WEEKS
     Route: 048
  3. HEPARIN [Concomitant]
     Indication: ANTICOAGULANT THERAPY
     Dosage: 75 IU/KG, UNK
     Route: 042
  4. MELPHALAN HYDROCHLORIDE [Suspect]
     Indication: RETINOBLASTOMA
     Dosage: 5 MG, UNK
     Route: 013

REACTIONS (4)
  - ARTERIAL STENOSIS [None]
  - PANCYTOPENIA [None]
  - GLAUCOMA [None]
  - VITREOUS HAEMORRHAGE [None]
